FAERS Safety Report 23297969 (Version 1)
Quarter: 2023Q4

REPORT INFORMATION
  Report Type: Spontaneous
  Country: IT (occurrence: IT)
  Receive Date: 20231214
  Receipt Date: 20231214
  Transmission Date: 20240109
  Serious: Yes (Hospitalization)
  Sender: FDA-Public Use
  Company Number: None

PATIENT
  Age: 55 Year
  Sex: Male
  Weight: 108 kg

DRUGS (6)
  1. PIPERACILLIN SODIUM\TAZOBACTAM SODIUM [Suspect]
     Active Substance: PIPERACILLIN SODIUM\TAZOBACTAM SODIUM
     Indication: Cholecystitis acute
     Dosage: 4,5 G X 3
     Route: 042
     Dates: start: 20231119, end: 20231123
  2. IOPROMIDE [Suspect]
     Active Substance: IOPROMIDE
     Indication: Angiogram
     Route: 042
     Dates: start: 20231123, end: 20231123
  3. METFORMIN [Concomitant]
     Active Substance: METFORMIN HYDROCHLORIDE
     Indication: Type 2 diabetes mellitus
     Dosage: METFORMINA 1000 MG, 1 TABLET X 2?ROA: ORAL
     Route: 048
     Dates: start: 20231119, end: 20231121
  4. BISOPROLOL [Concomitant]
     Active Substance: BISOPROLOL\BISOPROLOL FUMARATE
     Indication: Tachycardia
     Dosage: BISOPROLOLO 1,25 MG, 1 TABLET?ROA: ORAL
     Dates: start: 20231120, end: 20231122
  5. PANTOPRAZOLE [Concomitant]
     Active Substance: PANTOPRAZOLE
     Indication: Cholelithiasis
     Dosage: PANTOPRAZOLO 40 MG, 1 VIAL X 2?ROA: INTRAVENOUS
     Dates: start: 20231119
  6. DEURSIL [Concomitant]
     Active Substance: URSODIOL
     Indication: Cholelithiasis
     Dosage: DEURSIL 300 MG, 1 TABLET X 2?ROA: ORAL
     Dates: start: 20231119

REACTIONS (2)
  - Acute kidney injury [Not Recovered/Not Resolved]
  - Erythema [Not Recovered/Not Resolved]

NARRATIVE: CASE EVENT DATE: 20231123
